FAERS Safety Report 23765076 (Version 2)
Quarter: 2024Q2

REPORT INFORMATION
  Report Type: Report from Study
  Country: IT (occurrence: IT)
  Receive Date: 20240420
  Receipt Date: 20240509
  Transmission Date: 20240715
  Serious: Yes (Hospitalization, Other)
  Sender: FDA-Public Use
  Company Number: IT-SA-SAC20240327001417

PATIENT
  Age: 5 Year
  Sex: Female
  Weight: 25 kg

DRUGS (6)
  1. DUPILUMAB [Suspect]
     Active Substance: DUPILUMAB
     Indication: Dermatitis atopic
     Dosage: 300 MG, Q4W
     Route: 058
     Dates: start: 202311, end: 20240323
  2. EBASTINE [Concomitant]
     Active Substance: EBASTINE
     Indication: Rhinitis allergic
     Dosage: 10 MG, QD
     Route: 048
     Dates: start: 202311
  3. EBASTINE [Concomitant]
     Active Substance: EBASTINE
     Indication: Urticaria
  4. EBASTINE [Concomitant]
     Active Substance: EBASTINE
     Indication: Conjunctivitis allergic
  5. BETAMETHASONE SODIUM PHOSPHATE [Concomitant]
     Active Substance: BETAMETHASONE SODIUM PHOSPHATE
     Indication: Hypersensitivity
     Dosage: 1 MG, QD
     Route: 048
     Dates: start: 202311
  6. BETAMETHASONE SODIUM PHOSPHATE [Concomitant]
     Active Substance: BETAMETHASONE SODIUM PHOSPHATE
     Indication: Superficial inflammatory dermatosis

REACTIONS (15)
  - Arthritis bacterial [Recovered/Resolved]
  - Joint swelling [Recovered/Resolved]
  - Arthralgia [Recovered/Resolved]
  - Pyrexia [Recovered/Resolved with Sequelae]
  - Tenderness [Recovered/Resolved]
  - Effusion [Recovered/Resolved]
  - Feeling hot [Recovered/Resolved]
  - Erythema [Recovered/Resolved]
  - Gait inability [Recovered/Resolved]
  - Dry skin [Recovering/Resolving]
  - Eczema infected [Recovering/Resolving]
  - Pharyngeal erythema [Recovering/Resolving]
  - Hyperkeratosis [Recovering/Resolving]
  - Strawberry tongue [Recovering/Resolving]
  - Tympanic membrane disorder [Recovering/Resolving]

NARRATIVE: CASE EVENT DATE: 20240323
